FAERS Safety Report 7866754-7 (Version None)
Quarter: 2011Q4

REPORT INFORMATION
  Report Type: 
  Country: None (occurrence: None)
  Receive Date: 20111028
  Receipt Date: 20110804
  Transmission Date: 20120403
  Serious: Yes (Other)
  Sender: FDA-Public Use
  Company Number: US-GLAXOSMITHKLINE-A0940549A

PATIENT
  Age: 69 Year
  Sex: Male
  Weight: 63.2 kg

DRUGS (12)
  1. JANUVIA [Concomitant]
     Dosage: 100MGD PER DAY
  2. ADVAIR DISKUS 100/50 [Suspect]
     Indication: PRODUCT USED FOR UNKNOWN INDICATION
     Route: 055
  3. PROTONIX [Concomitant]
     Indication: HIATUS HERNIA
     Dosage: 40MGD PER DAY
  4. ASPIRIN [Concomitant]
     Dosage: 81MGD PER DAY
  5. CRESTOR [Concomitant]
     Dosage: 20MGD PER DAY
  6. RANEXA [Concomitant]
     Dosage: 500MG TWICE PER DAY
  7. CHANTIX [Suspect]
     Indication: SMOKING CESSATION THERAPY
     Route: 048
  8. PLAVIX [Concomitant]
     Dosage: 75MGD PER DAY
  9. LANOXIN [Concomitant]
     Indication: MYOCARDIAL INFARCTION
     Dosage: .125MGD PER DAY
     Route: 048
  10. NIASPAN [Concomitant]
     Dosage: 500MGD PER DAY
  11. SPIRIVA [Suspect]
     Indication: PRODUCT USED FOR UNKNOWN INDICATION
     Dosage: 18MCG PER DAY
     Route: 055
  12. LISINOPRIL [Concomitant]
     Dosage: 10MGD PER DAY

REACTIONS (1)
  - GLAUCOMA [None]
